FAERS Safety Report 7490562-2 (Version None)
Quarter: 2011Q2

REPORT INFORMATION
  Report Type: 
  Country: None (occurrence: None)
  Receive Date: 20110512
  Receipt Date: 20110427
  Transmission Date: 20111010
  Serious: Yes (Other)
  Sender: FDA-Public Use
  Company Number: 20110297

PATIENT
  Sex: Female

DRUGS (1)
  1. DEXAMETHASONE SODIUM PHOSPHATE [Suspect]
     Indication: SPINAL DISORDER
     Dosage: INTRA-ARTICULAR
     Route: 014

REACTIONS (8)
  - INJECTION SITE DISCHARGE [None]
  - INJECTION SITE INJURY [None]
  - SKIN INJURY [None]
  - INJECTION SITE SWELLING [None]
  - INJECTION SITE SCAB [None]
  - INJECTION SITE ERYTHEMA [None]
  - SCAR [None]
  - INDURATION [None]
